FAERS Safety Report 5215993-2 (Version None)
Quarter: 2007Q1

REPORT INFORMATION
  Report Type: 
  Country: None (occurrence: None)
  Receive Date: 20070123
  Receipt Date: 20070111
  Transmission Date: 20070707
  Serious: Yes (Life-Threatening, Hospitalization)
  Sender: FDA-Public Use
  Company Number: CN-SANOFI-SYNTHELABO-A01200700016

PATIENT
  Age: 29 Year

DRUGS (1)
  1. ZOLPIDEM TARTRATE [Suspect]
     Indication: SUICIDE ATTEMPT
     Route: 048
     Dates: start: 20061229, end: 20061229

REACTIONS (3)
  - COMA [None]
  - INTENTIONAL OVERDOSE [None]
  - SOMNOLENCE [None]
